FAERS Safety Report 18033283 (Version 1)
Quarter: 2020Q3

REPORT INFORMATION
  Report Type: Spontaneous
  Country: US (occurrence: US)
  Receive Date: 20200716
  Receipt Date: 20200716
  Transmission Date: 20201103
  Serious: No
  Sender: FDA-Public Use
  Company Number: US-FRESENIUS MEDICAL CARE RENAL THERAPIES GROUP-FMC-2007-000782

PATIENT
  Age: 69 Year
  Sex: Male
  Weight: 110 kg

DRUGS (3)
  1. DELFLEX WITH DEXTROSE 4.25% LOW MAGNESIUM LOW CALCIUM [Suspect]
     Active Substance: CALCIUM CHLORIDE\DEXTROSE\MAGNESIUM CHLORIDE\SODIUM CHLORIDE\SODIUM LACTATE
     Indication: END STAGE RENAL DISEASE
     Dosage: TOTAL TREATMENT VOLUME = 14,500 ML, FILL VOLUME = 3000 ML, 5 EXCHANGES, LAST FILL = 2500 ML, NO DAYT
     Route: 033
  2. DELFLEX WITH DEXTROSE 1.5% LOW MAGNESIUM LOW CALCIUM [Suspect]
     Active Substance: CALCIUM CHLORIDE\DEXTROSE\MAGNESIUM CHLORIDE\SODIUM CHLORIDE\SODIUM LACTATE
     Indication: END STAGE RENAL DISEASE
     Dosage: TOTAL TREATMENT VOLUME = 14,500 ML, FILL VOLUME = 3000 ML, 5 EXCHANGES, LAST FILL = 2500 ML, NO DAYT
     Route: 033
  3. DELFLEX WITH DEXTROSE 2.5% LOW MAGNESIUM LOW CALCIUM [Suspect]
     Active Substance: CALCIUM CHLORIDE\DEXTROSE\MAGNESIUM CHLORIDE\SODIUM CHLORIDE\SODIUM LACTATE
     Indication: END STAGE RENAL DISEASE
     Dosage: TOTAL TREATMENT VOLUME = 14,500 ML, FILL VOLUME = 3000 ML, 5 EXCHANGES, LAST FILL = 2500 ML, NO DAYT
     Route: 033

REACTIONS (1)
  - Umbilical hernia [Not Recovered/Not Resolved]
